FAERS Safety Report 8535013-1 (Version None)
Quarter: 2012Q3

REPORT INFORMATION
  Report Type: 
  Country: None (occurrence: None)
  Receive Date: 20120724
  Receipt Date: 20120716
  Transmission Date: 20120928
  Serious: Yes (Hospitalization)
  Sender: FDA-Public Use
  Company Number: US-PFIZER INC-2012172065

PATIENT
  Age: 65 Year
  Sex: Male

DRUGS (4)
  1. VANCOMYCIN HCL [Suspect]
     Indication: OESOPHAGEAL PERFORATION
  2. LEVOFLOXACIN [Suspect]
     Indication: OESOPHAGEAL PERFORATION
  3. METRONIDAZOLE [Concomitant]
     Indication: OESOPHAGEAL PERFORATION
  4. FLUCONAZOLE [Concomitant]
     Indication: OESOPHAGEAL PERFORATION

REACTIONS (1)
  - DRUG RASH WITH EOSINOPHILIA AND SYSTEMIC SYMPTOMS [None]
